FAERS Safety Report 19042359 (Version 1)
Quarter: 2021Q1

REPORT INFORMATION
  Report Type: Spontaneous
  Country: DE (occurrence: DE)
  Receive Date: 20210322
  Receipt Date: 20210322
  Transmission Date: 20210420
  Serious: Yes (Hospitalization)
  Sender: FDA-Public Use
  Company Number: NVSC2021DE060217

PATIENT
  Age: 15 Year
  Sex: Female
  Weight: 32 kg

DRUGS (7)
  1. OXCARBAZEPINE. [Suspect]
     Active Substance: OXCARBAZEPINE
     Indication: EPILEPSY
     Dosage: UNK (300?0?600MG)
     Route: 048
     Dates: start: 20150316
  2. L?THYROXINE [Concomitant]
     Active Substance: LEVOTHYROXINE
     Indication: HYPOTHYROIDISM
     Dosage: 37.5 UG, QD
     Route: 048
     Dates: start: 20171124
  3. DIAZEPAM. [Concomitant]
     Active Substance: DIAZEPAM
     Indication: EPILEPSY
     Dosage: 10 MG
     Route: 054
  4. TOPIRAMAT SANDOZ 200 MG FILMDRASJERTE TABLETTER [Suspect]
     Active Substance: TOPIRAMATE
     Indication: EPILEPSY
     Dosage: UNK (50?0?75MG)
     Route: 048
  5. L?ARGININE [Concomitant]
     Active Substance: ARGININE
     Indication: PRODUCT USED FOR UNKNOWN INDICATION
     Dosage: 6 G, TID
     Route: 048
  6. KEPPRA [Suspect]
     Active Substance: LEVETIRACETAM
     Indication: EPILEPSY
     Dosage: UNK (0.8?0?1G)
     Route: 048
     Dates: start: 20150316
  7. COENZYM Q10 [Concomitant]
     Indication: MELAS SYNDROME
     Dosage: 300 MG, TID
     Route: 048
     Dates: start: 20150409

REACTIONS (4)
  - Hyponatraemia [Unknown]
  - Paraesthesia [Unknown]
  - Blood osmolarity decreased [Unknown]
  - Headache [Unknown]

NARRATIVE: CASE EVENT DATE: 20180725
